FAERS Safety Report 7875383-0 (Version None)
Quarter: 2011Q4

REPORT INFORMATION
  Report Type: 
  Country: None (occurrence: None)
  Receive Date: 20111031
  Receipt Date: 20111020
  Transmission Date: 20120403
  Serious: Yes (Other)
  Sender: FDA-Public Use
  Company Number: JP-GLAXOSMITHKLINE-B0757792A

PATIENT

DRUGS (3)
  1. DIAMOX SRC [Concomitant]
     Route: 048
  2. UNKNOWN DRUG [Concomitant]
     Route: 048
  3. FLUTICASONE PROPIONATE/SALMETEROL [Suspect]
     Indication: PRODUCT USED FOR UNKNOWN INDICATION
     Route: 055
     Dates: start: 20110601

REACTIONS (4)
  - BUCCAL MUCOSAL ROUGHENING [None]
  - DYSPHONIA [None]
  - HYPOKALAEMIA [None]
  - ORAL CANDIDIASIS [None]
